FAERS Safety Report 6472329-7 (Version None)
Quarter: 2009Q4

REPORT INFORMATION
  Report Type: 
  Country: None (occurrence: None)
  Receive Date: 20091203
  Receipt Date: 20081208
  Transmission Date: 20100525
  Serious: No
  Sender: FDA-Public Use
  Company Number: US-AMGEN-KDL322572

PATIENT
  Sex: Male
  Weight: 158.9 kg

DRUGS (8)
  1. ENBREL [Suspect]
     Indication: PSORIATIC ARTHROPATHY
  2. ENBREL [Suspect]
     Indication: PSORIASIS
  3. MOBIC [Concomitant]
  4. ALLOPURINOL [Concomitant]
  5. DIOVAN HCT [Concomitant]
  6. LIPITOR [Concomitant]
  7. ACIPHEX [Concomitant]
  8. CELEBREX [Concomitant]

REACTIONS (4)
  - DIZZINESS [None]
  - HEADACHE [None]
  - PSORIASIS [None]
  - RED BLOOD CELL SEDIMENTATION RATE INCREASED [None]
